FAERS Safety Report 5485845-1 (Version None)
Quarter: 2007Q4

REPORT INFORMATION
  Report Type: 
  Country: None (occurrence: None)
  Receive Date: 20071015
  Receipt Date: 20071008
  Transmission Date: 20080405
  Serious: Yes (Death, Hospitalization)
  Sender: FDA-Public Use
  Company Number: CA-ABBOTT-07P-028-0420029-00

PATIENT
  Age: 52 Year
  Sex: Female
  Weight: 50.848 kg

DRUGS (4)
  1. ERYTHROMYCIN [Suspect]
     Indication: DIARRHOEA
     Route: 030
     Dates: start: 19660920
  2. NEOMYCIN [Suspect]
     Indication: DIARRHOEA
     Dosage: NOT REPORTED
  3. KAOLIN [Suspect]
     Indication: DIARRHOEA
     Dosage: NOT REPORTED
  4. CHLORAMPHENICOL [Suspect]
     Indication: DIARRHOEA
     Route: 030
     Dates: end: 19660920

REACTIONS (2)
  - PSEUDOMEMBRANOUS COLITIS [None]
  - SHOCK [None]
